FAERS Safety Report 4598742-0 (Version None)
Quarter: 2005Q1

REPORT INFORMATION
  Report Type: 
  Country: None (occurrence: None)
  Receive Date: 20050304
  Receipt Date: 20050226
  Transmission Date: 20050727
  Serious: Yes (Other)
  Sender: FDA-Public Use
  Company Number: GB-GLAXOSMITHKLINE-B0373067A

PATIENT
  Age: 40 Year
  Sex: Female

DRUGS (2)
  1. PAROXETINE HCL [Suspect]
     Indication: DEPRESSION
     Dosage: 30MG PER DAY
     Route: 048
     Dates: start: 20040601, end: 20041220
  2. ZIMOVANE [Concomitant]
     Indication: SLEEP DISORDER
     Dosage: 15MG PER DAY
     Route: 048
     Dates: start: 20041101, end: 20050204

REACTIONS (1)
  - HOMICIDAL IDEATION [None]
